FAERS Safety Report 10292251 (Version 2)
Quarter: 2014Q3

REPORT INFORMATION
  Report Type: Spontaneous
  Country: DK (occurrence: DK)
  Receive Date: 20140710
  Receipt Date: 20140710
  Transmission Date: 20150326
  Serious: Yes (Hospitalization)
  Sender: FDA-Public Use
  Company Number: PHHY2014DK081200

PATIENT
  Age: 19 Year
  Sex: Male

DRUGS (3)
  1. VALPROIC ACID. [Suspect]
     Active Substance: VALPROIC ACID
     Indication: NEURONAL CEROID LIPOFUSCINOSIS
     Dosage: 1000 MG, PER 24H
  2. OXCARBAZEPINE. [Suspect]
     Active Substance: OXCARBAZEPINE
     Indication: NEURONAL CEROID LIPOFUSCINOSIS
     Dosage: 1500 MG, PER 24H
  3. QUETIAPINE [Suspect]
     Active Substance: QUETIAPINE
     Dosage: 200 MG, PER 24H

REACTIONS (5)
  - Hyperammonaemic encephalopathy [Recovered/Resolved]
  - Anticonvulsant drug level above therapeutic [Unknown]
  - Somnolence [Recovering/Resolving]
  - Hyperammonaemia [Recovering/Resolving]
  - Coma [Recovered/Resolved]
